FAERS Safety Report 5067897-6 (Version None)
Quarter: 2006Q3

REPORT INFORMATION
  Report Type: 
  Country: None (occurrence: None)
  Receive Date: 20060728
  Receipt Date: 20060711
  Transmission Date: 20061208
  Serious: Yes (Death, Other)
  Sender: FDA-Public Use
  Company Number: FR200607002987

PATIENT
  Age: 20 Year
  Sex: Male

DRUGS (4)
  1. GEMCITABINE [Suspect]
     Indication: BILE DUCT CANCER
     Dosage: 1000 MG/M2, OTHER, INTRAVENOUS
     Route: 042
  2. OXALIPLATIN [Concomitant]
  3. FLUOROURACIL [Concomitant]
  4. ERBITUX [Concomitant]

REACTIONS (13)
  - ABDOMINAL PAIN [None]
  - ASTHENIA [None]
  - COAGULOPATHY [None]
  - DERMATITIS ACNEIFORM [None]
  - DISEASE PROGRESSION [None]
  - DRUG TOXICITY [None]
  - METASTASES TO CENTRAL NERVOUS SYSTEM [None]
  - METASTASES TO LUNG [None]
  - MUSCULOSKELETAL PAIN [None]
  - NEUTROPENIA [None]
  - THROMBOCYTOPENIA [None]
  - TRANSAMINASES INCREASED [None]
  - VOMITING [None]
